FAERS Safety Report 8595320-3 (Version None)
Quarter: 2012Q3

REPORT INFORMATION
  Report Type: 
  Country: None (occurrence: None)
  Receive Date: 20120815
  Receipt Date: 20110601
  Transmission Date: 20120928
  Serious: No
  Sender: FDA-Public Use
  Company Number: US-PFIZER INC-2011118735

PATIENT
  Sex: Female

DRUGS (7)
  1. TETRACYCLINE HCL [Suspect]
     Dosage: UNK
  2. BUMEX [Concomitant]
  3. TERIPARATIDE [Concomitant]
  4. BIAXIN [Concomitant]
  5. IBANDRONATE SODIUM [Concomitant]
  6. PENICILLIN G PROCAINE [Suspect]
     Dosage: UNK
  7. FOSAMAX [Concomitant]

REACTIONS (1)
  - HYPERSENSITIVITY [None]
